FAERS Safety Report 13766686 (Version 1)
Quarter: 2017Q3

REPORT INFORMATION
  Report Type: Report from Study
  Country: CA (occurrence: CA)
  Receive Date: 20170719
  Receipt Date: 20170719
  Transmission Date: 20171127
  Serious: Yes (Other)
  Sender: FDA-Public Use
  Company Number: CA-HLSUS-2017-CA-000658

PATIENT
  Age: 12 Year
  Sex: Male
  Weight: 53 kg

DRUGS (6)
  1. MELATONIN [Concomitant]
     Active Substance: MELATONIN
  2. APO-CLONAZEPAM [Concomitant]
     Active Substance: CLONAZEPAM
  3. QUETIAPINE FUMERATE [Concomitant]
     Active Substance: QUETIAPINE FUMARATE
  4. CLOZARIL [Suspect]
     Active Substance: CLOZAPINE
     Indication: PSYCHOTIC DISORDER
     Dosage: 25 MG DAILY MORNING AND 175 MG BED TIME
     Route: 048
     Dates: end: 201505
  5. RESTORALAX [Concomitant]
     Active Substance: POLYETHYLENE GLYCOL 3350
  6. VYVANSE [Concomitant]
     Active Substance: LISDEXAMFETAMINE DIMESYLATE
     Dosage: 40 MG DAILY MORNING STABLE DOSE

REACTIONS (5)
  - Left atrial enlargement [Unknown]
  - Electrocardiogram QT interval abnormal [Unknown]
  - Bundle branch block right [Unknown]
  - Sinus tachycardia [Unknown]
  - Psychotic disorder [Unknown]

NARRATIVE: CASE EVENT DATE: 20160627
